FAERS Safety Report 16153202 (Version 14)
Quarter: 2023Q2

REPORT INFORMATION
  Report Type: Other
  Country: CA (occurrence: None)
  Receive Date: 20190403
  Receipt Date: 20230505
  Transmission Date: 20230721
  Serious: Yes (Other)
  Sender: FDA-Public Use
  Company Number: CA-ROCHE-2296136

PATIENT
  Sex: Female

DRUGS (5)
  1. OCREVUS [Suspect]
     Active Substance: OCRELIZUMAB
     Indication: Relapsing-remitting multiple sclerosis
     Dosage: 300 MG ON DAY 0, DAY 14, FOLLOWED BY 600 MG EVERY 6 MONTHS.
     Route: 042
     Dates: start: 20161101
  2. OMEGA 3 [Concomitant]
     Active Substance: CAPSAICIN
     Route: 065
  3. PLAN B [Concomitant]
     Active Substance: LEVONORGESTREL
     Dosage: ONE TIME
     Dates: start: 201907
  4. FLUTICASONE FUROATE [Concomitant]
     Active Substance: FLUTICASONE FUROATE
  5. AZITHROMYCIN [Concomitant]
     Active Substance: AZITHROMYCIN
     Indication: Sinusitis

REACTIONS (33)
  - Multiple sclerosis [Not Recovered/Not Resolved]
  - Rash [Recovered/Resolved]
  - Cough [Not Recovered/Not Resolved]
  - Nasopharyngitis [Recovering/Resolving]
  - Stress [Not Recovered/Not Resolved]
  - Muscle twitching [Not Recovered/Not Resolved]
  - Urinary tract infection [Recovered/Resolved]
  - Discomfort [Unknown]
  - Infusion related reaction [Recovered/Resolved]
  - Abdominal pain upper [Recovering/Resolving]
  - Headache [Unknown]
  - Dyspnoea [Unknown]
  - Pyrexia [Unknown]
  - Pulmonary pain [Not Recovered/Not Resolved]
  - Ear infection [Recovering/Resolving]
  - Ear discomfort [Not Recovered/Not Resolved]
  - Musculoskeletal chest pain [Not Recovered/Not Resolved]
  - Paraesthesia [Not Recovered/Not Resolved]
  - Sinus congestion [Unknown]
  - Headache [Unknown]
  - Ear discomfort [Unknown]
  - Infusion related reaction [Not Recovered/Not Resolved]
  - Nausea [Recovered/Resolved]
  - Nasal congestion [Recovering/Resolving]
  - Chills [Unknown]
  - Feeling of body temperature change [Unknown]
  - Fatigue [Unknown]
  - Stress [Unknown]
  - Aphasia [Unknown]
  - Ear pain [Recovered/Resolved]
  - Muscle twitching [Not Recovered/Not Resolved]
  - COVID-19 [Not Recovered/Not Resolved]
  - Productive cough [Recovering/Resolving]

NARRATIVE: CASE EVENT DATE: 20180101
